FAERS Safety Report 19974937 (Version 1)
Quarter: 2021Q4

REPORT INFORMATION
  Report Type: Spontaneous
  Country: US (occurrence: US)
  Receive Date: 20211020
  Receipt Date: 20211020
  Transmission Date: 20220304
  Serious: No
  Sender: FDA-Public Use
  Company Number: US-ALLERGAN-2044033US

PATIENT
  Age: 86 Year
  Sex: Male

DRUGS (4)
  1. LINZESS [Suspect]
     Active Substance: LINACLOTIDE
     Indication: Irritable bowel syndrome
     Dosage: 145 UNK
     Route: 048
     Dates: start: 2020
  2. LINZESS [Suspect]
     Active Substance: LINACLOTIDE
     Dosage: 72 ?G, QAM
     Route: 048
  3. WARFARIN SODIUM [Concomitant]
     Active Substance: WARFARIN SODIUM
     Indication: Product used for unknown indication
     Dosage: UNK
  4. PREDNISONE [Concomitant]
     Active Substance: PREDNISONE
     Indication: Product used for unknown indication
     Dosage: 5 MG, QD

REACTIONS (2)
  - Off label use [Unknown]
  - Therapeutic response decreased [Unknown]
